FAERS Safety Report 9420030 (Version 2)
Quarter: 2013Q3

REPORT INFORMATION
  Report Type: Report from Study
  Country: US (occurrence: US)
  Receive Date: 20130725
  Receipt Date: 20130805
  Transmission Date: 20140515
  Serious: Yes (Other)
  Sender: FDA-Public Use
  Company Number: US-ACTELION-A-US2013-86375

PATIENT
  Age: 55 Year
  Sex: Female

DRUGS (4)
  1. VENTAVIS [Suspect]
     Indication: PULMONARY HYPERTENSION
     Dosage: UNK
     Route: 055
  2. ROFLUMILAST [Suspect]
  3. LETAIRIS [Concomitant]
  4. COUMADIN [Concomitant]

REACTIONS (1)
  - Abnormal loss of weight [Unknown]
